FAERS Safety Report 12199297 (Version 1)
Quarter: 2016Q1

REPORT INFORMATION
  Report Type: Spontaneous
  Country: US (occurrence: US)
  Receive Date: 20160322
  Receipt Date: 20160322
  Transmission Date: 20160526
  Serious: No
  Sender: FDA-Public Use
  Company Number: US-PFIZER INC-2016111991

PATIENT
  Sex: Female

DRUGS (26)
  1. VALIUM [Suspect]
     Active Substance: DIAZEPAM
     Dosage: UNK
  2. DEMEROL [Suspect]
     Active Substance: MEPERIDINE HYDROCHLORIDE
     Dosage: UNK
  3. ALOCRIL [Suspect]
     Active Substance: NEDOCROMIL SODIUM
     Dosage: UNK
  4. PLENDIL [Suspect]
     Active Substance: FELODIPINE
  5. SULAR [Suspect]
     Active Substance: NISOLDIPINE
     Dosage: UNK
  6. TIGAN [Suspect]
     Active Substance: TRIMETHOBENZAMIDE HYDROCHLORIDE
  7. PAMELOR [Suspect]
     Active Substance: NORTRIPTYLINE HYDROCHLORIDE
     Dosage: UNK
  8. SINEQUAN [Suspect]
     Active Substance: DOXEPIN HYDROCHLORIDE
     Dosage: UNK
  9. VERAPAMIL HCL [Suspect]
     Active Substance: VERAPAMIL HYDROCHLORIDE
     Dosage: UNK
  10. CODEINE [Suspect]
     Active Substance: CODEINE
     Dosage: UNK
  11. PERCODAN [Suspect]
     Active Substance: ASPIRIN\OXYCODONE HYDROCHLORIDE
     Dosage: UNK
  12. VERAMYST [Suspect]
     Active Substance: FLUTICASONE FUROATE
     Dosage: UNK
  13. LUNESTA [Suspect]
     Active Substance: ESZOPICLONE
     Dosage: UNK
  14. WYDASE [Suspect]
     Active Substance: HYALURONIDASE
     Dosage: UNK
  15. QUININE SULFATE. [Suspect]
     Active Substance: QUININE SULFATE
     Dosage: UNK
  16. DURICEF [Suspect]
     Active Substance: CEFADROXIL
     Dosage: UNK
  17. VOLTAREN [Suspect]
     Active Substance: DICLOFENAC SODIUM
     Dosage: UNK
  18. ACCUPRIL [Suspect]
     Active Substance: QUINAPRIL HYDROCHLORIDE
     Dosage: UNK
  19. INDERAL [Suspect]
     Active Substance: PROPRANOLOL HYDROCHLORIDE
     Dosage: UNK
  20. DICLOFENAC SODIUM. [Suspect]
     Active Substance: DICLOFENAC SODIUM
     Dosage: UNK
  21. CLARITIN [Suspect]
     Active Substance: LORATADINE
     Dosage: UNK
  22. WELLBUTRIN [Suspect]
     Active Substance: BUPROPION HYDROCHLORIDE
     Dosage: UNK
  23. THORAZINE [Suspect]
     Active Substance: CHLORPROMAZINE
     Dosage: UNK
  24. CARBOCAINE [Suspect]
     Active Substance: MEPIVACAINE HYDROCHLORIDE
     Dosage: UNK
  25. NEMBUTAL SODIUM [Suspect]
     Active Substance: PENTOBARBITAL SODIUM
     Dosage: UNK
  26. DILAUDID [Suspect]
     Active Substance: HYDROMORPHONE HYDROCHLORIDE
     Dosage: UNK

REACTIONS (1)
  - Drug hypersensitivity [Unknown]
